FAERS Safety Report 11145036 (Version 1)
Quarter: 2015Q2

REPORT INFORMATION
  Report Type: Spontaneous
  Country: US (occurrence: US)
  Receive Date: 20150526
  Receipt Date: 20150526
  Transmission Date: 20150821
  Serious: No
  Sender: FDA-Public Use
  Company Number: US-TEVA-564659ACC

PATIENT
  Sex: Female

DRUGS (2)
  1. PLAN B ONE-STEP [Suspect]
     Active Substance: LEVONORGESTREL
     Route: 048
     Dates: start: 20150426, end: 20150426
  2. PLAN B ONE-STEP [Suspect]
     Active Substance: LEVONORGESTREL
     Indication: POST COITAL CONTRACEPTION
     Route: 048

REACTIONS (3)
  - Menstruation irregular [Not Recovered/Not Resolved]
  - Menorrhagia [Recovered/Resolved]
  - Dysmenorrhoea [Not Recovered/Not Resolved]
